FAERS Safety Report 18393232 (Version 1)
Quarter: 2020Q4

REPORT INFORMATION
  Report Type: Spontaneous
  Country: CA (occurrence: CA)
  Receive Date: 20201016
  Receipt Date: 20201016
  Transmission Date: 20210114
  Serious: Yes (Death, Hospitalization, Other)
  Sender: FDA-Public Use
  Company Number: CA-PFIZER INC-2020396655

PATIENT
  Age: 53 Year
  Sex: Male

DRUGS (9)
  1. ANCOTIL [Suspect]
     Active Substance: FLUCYTOSINE
     Indication: DISSEMINATED CRYPTOCOCCOSIS
     Dosage: UNK
  2. PREDNISOLONE. [Suspect]
     Active Substance: PREDNISOLONE
     Indication: IMMUNOSUPPRESSANT DRUG THERAPY
     Dosage: UNK
  3. AMPHOTERICIN B. [Suspect]
     Active Substance: AMPHOTERICIN B
     Indication: OSTEOMYELITIS FUNGAL
     Dosage: 3 MG/KG
  4. TACROLIMUS. [Suspect]
     Active Substance: TACROLIMUS
     Indication: PROPHYLAXIS AGAINST TRANSPLANT REJECTION
     Dosage: UNK
  5. INSULIN [Concomitant]
     Active Substance: INSULIN NOS
     Dosage: UNK
  6. METRONIDAZOLE. [Suspect]
     Active Substance: METRONIDAZOLE
     Indication: ANTIBIOTIC THERAPY
     Dosage: UNK
     Route: 042
  7. CEFTRIAXONE SODIUM. [Suspect]
     Active Substance: CEFTRIAXONE SODIUM
     Indication: ANTIBIOTIC THERAPY
     Dosage: UNK
     Route: 042
  8. PREDNISONE. [Suspect]
     Active Substance: PREDNISONE
     Indication: IMMUNOSUPPRESSANT DRUG THERAPY
     Dosage: UNK
  9. VANCOMYCIN HCL [Suspect]
     Active Substance: VANCOMYCIN HYDROCHLORIDE
     Indication: ANTIBIOTIC THERAPY
     Dosage: UNK
     Route: 042

REACTIONS (25)
  - Arthralgia [Fatal]
  - Headache [Fatal]
  - Osteomyelitis fungal [Fatal]
  - Therapy non-responder [Fatal]
  - Electrolyte imbalance [Fatal]
  - Intracranial pressure increased [Fatal]
  - Pyrexia [Fatal]
  - Renal failure [Fatal]
  - Off label use [Unknown]
  - Hepatic enzyme increased [Fatal]
  - Pulmonary mass [Fatal]
  - Skin lesion [Fatal]
  - Skin ulcer [Fatal]
  - Acute kidney injury [Fatal]
  - Disseminated cryptococcosis [Fatal]
  - Pancytopenia [Fatal]
  - Pruritus [Fatal]
  - Treatment noncompliance [Fatal]
  - Cerebral cyst [Fatal]
  - Liver transplant failure [Fatal]
  - Vomiting [Fatal]
  - Blood creatine increased [Fatal]
  - Muscle abscess [Fatal]
  - Tension headache [Fatal]
  - Product use issue [Unknown]
